FAERS Safety Report 23425890 (Version 2)
Quarter: 2024Q1

REPORT INFORMATION
  Report Type: Spontaneous
  Country: CN (occurrence: CN)
  Receive Date: 20240122
  Receipt Date: 20240130
  Transmission Date: 20240410
  Serious: Yes (Other)
  Sender: FDA-Public Use
  Company Number: CN-ALKEM LABORATORIES LIMITED-CN-ALKEM-2024-00355

PATIENT
  Age: 16 Year
  Sex: Female
  Weight: 52 kg

DRUGS (3)
  1. MYCOPHENOLATE MOFETIL [Suspect]
     Active Substance: MYCOPHENOLATE MOFETIL
     Indication: Systemic lupus erythematosus
     Dosage: 750 MILLIGRAM, BID (EVERY 12 HOURS)
     Route: 048
  2. METHYLPREDNISOLONE [Concomitant]
     Active Substance: METHYLPREDNISOLONE
     Indication: Systemic lupus erythematosus
     Dosage: 40 MILLIGRAM, QD
     Route: 042
  3. METHYLPREDNISOLONE [Concomitant]
     Active Substance: METHYLPREDNISOLONE
     Dosage: 500 MG/DAY
     Route: 042

REACTIONS (3)
  - Posterior reversible encephalopathy syndrome [Recovered/Resolved]
  - Cerebral haematoma [Recovered/Resolved]
  - Cerebral haemorrhage [Recovered/Resolved]
